FAERS Safety Report 7131245-8 (Version None)
Quarter: 2010Q4

REPORT INFORMATION
  Report Type: 
  Country: None (occurrence: None)
  Receive Date: 20101124
  Receipt Date: 20101124
  Transmission Date: 20110411
  Serious: Yes (Hospitalization)
  Sender: FDA-Public Use
  Company Number: None

PATIENT
  Age: 34 Year
  Sex: Female
  Weight: 65.7716 kg

DRUGS (7)
  1. SEROQUEL [Suspect]
     Indication: MANIA
     Dosage: 2X PO
     Route: 048
     Dates: start: 20100205, end: 20101124
  2. DEPAKOTE [Suspect]
     Indication: DEPRESSION
     Dosage: ONCE PO
     Route: 048
     Dates: start: 20100205, end: 20101124
  3. KLONOPIN [Concomitant]
  4. ABILIFY [Concomitant]
  5. ZYPREXA [Concomitant]
  6. LAMICTAL [Concomitant]
  7. THORAZINE [Concomitant]

REACTIONS (7)
  - AGGRESSION [None]
  - ANGER [None]
  - EMOTIONAL DISORDER [None]
  - MANIA [None]
  - PARANOIA [None]
  - REGRESSIVE BEHAVIOUR [None]
  - THINKING ABNORMAL [None]
